FAERS Safety Report 9780188 (Version 2)
Quarter: 2013Q4

REPORT INFORMATION
  Report Type: Spontaneous
  Country: MX (occurrence: MX)
  Receive Date: 20131223
  Receipt Date: 20131223
  Transmission Date: 20140711
  Serious: Yes (Death)
  Sender: FDA-Public Use
  Company Number: PHHY2012MX065618

PATIENT
  Age: 74 Year
  Sex: Male

DRUGS (12)
  1. ZOMETA [Suspect]
     Indication: OSTEOPOROSIS
     Dosage: 4 MG, MONTHLY
     Route: 042
     Dates: start: 201207
  2. ZOMETA [Suspect]
     Indication: NEOPLASM MALIGNANT
  3. BICALUTAMIDE [Concomitant]
     Dosage: UNK UKN, UNK
  4. TAFIL [Concomitant]
     Dosage: UNK UKN, UNK
  5. LEXAPRO [Concomitant]
     Dosage: UNK UKN, UNK
  6. LASILACTON [Concomitant]
     Dosage: UNK UKN, UNK
  7. LANOXIN [Concomitant]
     Dosage: UNK UKN, UNK
  8. SALIDEX [Concomitant]
     Dosage: UNK UKN, UNK
  9. PROFENID [Concomitant]
     Dosage: UNK UKN, UNK
  10. PRODOLINA [Concomitant]
     Dosage: UNK UKN, UNK
  11. OMEPRAZOL [Concomitant]
     Dosage: UNK UKN, UNK
  12. ALIN [Concomitant]
     Dosage: UNK UKN, UNK

REACTIONS (5)
  - Death [Fatal]
  - Depression [Not Recovered/Not Resolved]
  - Nausea [Not Recovered/Not Resolved]
  - Vomiting [Not Recovered/Not Resolved]
  - Bone pain [Not Recovered/Not Resolved]
